FAERS Safety Report 21472559 (Version 3)
Quarter: 2022Q4

REPORT INFORMATION
  Report Type: Spontaneous
  Country: US (occurrence: US)
  Receive Date: 20221018
  Receipt Date: 20221116
  Transmission Date: 20230112
  Serious: Yes (Disabling)
  Sender: FDA-Public Use
  Company Number: US-SA-SAC20221017000372

PATIENT
  Age: 51 Year
  Sex: Male

DRUGS (1)
  1. DUPIXENT [Suspect]
     Active Substance: DUPILUMAB
     Indication: Dermatitis atopic
     Dosage: 300 MG, QOW
     Route: 058
     Dates: start: 20211006, end: 20221013

REACTIONS (3)
  - Arthralgia [Not Recovered/Not Resolved]
  - Pain [Unknown]
  - Arthritis [Unknown]

NARRATIVE: CASE EVENT DATE: 20221006
